APPROVED DRUG PRODUCT: TACROLIMUS
Active Ingredient: TACROLIMUS
Strength: EQ 0.5MG BASE
Dosage Form/Route: CAPSULE;ORAL
Application: A210929 | Product #001
Applicant: HANGZHOU ZHONGMEI HUADONG PHARMACEUTICAL CO LTD
Approved: Apr 17, 2023 | RLD: No | RS: No | Type: DISCN